FAERS Safety Report 7488495-0 (Version None)
Quarter: 2011Q2

REPORT INFORMATION
  Report Type: 
  Country: None (occurrence: None)
  Receive Date: 20110518
  Receipt Date: 20110511
  Transmission Date: 20111010
  Serious: Yes (Life-Threatening, Hospitalization)
  Sender: FDA-Public Use
  Company Number: JP-MERCK-1105USA02359

PATIENT
  Age: 74 Year
  Sex: Female

DRUGS (5)
  1. FOSAMAX [Suspect]
     Indication: OSTEOPOROSIS
     Route: 048
     Dates: end: 20110505
  2. HYZAAR [Suspect]
     Route: 048
     Dates: end: 20110505
  3. LAMISIL [Suspect]
     Route: 065
     Dates: end: 20110505
  4. AMLODIPINE BESYLATE [Concomitant]
     Route: 065
     Dates: end: 20110505
  5. PREDNISOLONE [Concomitant]
     Route: 065
     Dates: end: 20110505

REACTIONS (1)
  - RHABDOMYOLYSIS [None]
